FAERS Safety Report 13176883 (Version 2)
Quarter: 2017Q1

REPORT INFORMATION
  Report Type: Spontaneous
  Country: US (occurrence: US)
  Receive Date: 20170201
  Receipt Date: 20170310
  Transmission Date: 20170428
  Serious: No
  Sender: FDA-Public Use
  Company Number: US-PFIZER INC-2017041202

PATIENT
  Age: 73 Year
  Sex: Female

DRUGS (12)
  1. PREMARIN [Concomitant]
     Active Substance: ESTROGENS, CONJUGATED
     Dosage: 0.625 MG/G, UNK
     Route: 067
  2. CALTRATE 600+D [Concomitant]
     Dosage: 1 DF((1,500 MG) - 800 UNIT), DAILY
     Route: 048
  3. IBUPROFEN. [Concomitant]
     Active Substance: IBUPROFEN
     Dosage: 200 MG, DAILY
     Route: 048
  4. PRESERVISION AREDS 2 [Concomitant]
     Dosage: UNK
     Route: 048
  5. VENLAFAXINE HCL [Suspect]
     Active Substance: VENLAFAXINE HYDROCHLORIDE
     Dosage: 75 MG, DAILY
     Route: 048
  6. PROBIOTIC [Concomitant]
     Active Substance: PROBIOTICS NOS
     Dosage: UNK
  7. VITAMIN B12 [Concomitant]
     Active Substance: CYANOCOBALAMIN
     Dosage: 1000 UG, DAILY
     Route: 048
  8. BIOTIN [Concomitant]
     Active Substance: BIOTIN
     Dosage: 1000 MG, DAILY
     Route: 048
  9. SYNTHROID [Concomitant]
     Active Substance: LEVOTHYROXINE SODIUM
     Dosage: 25 UG, DAILY
     Route: 048
  10. METRONIDAZOLE. [Concomitant]
     Active Substance: METRONIDAZOLE
     Dosage: 0.75 %, UNK
     Route: 061
  11. FISH OIL [Concomitant]
     Active Substance: FISH OIL
     Dosage: 10000 MG, DAILY
     Route: 048
  12. MIRALAX [Concomitant]
     Active Substance: POLYETHYLENE GLYCOL 3350
     Dosage: 1000 MG, DAILY
     Route: 048

REACTIONS (17)
  - Rash pruritic [Recovered/Resolved]
  - Melanocytic naevus [Unknown]
  - Lentigo [Unknown]
  - Petechiae [Unknown]
  - Nausea [Unknown]
  - Skin hyperpigmentation [Unknown]
  - Scar [Unknown]
  - Skin lesion [Unknown]
  - Dermatitis [Unknown]
  - Acrochordon [Unknown]
  - Neoplasm [Unknown]
  - Skin hypopigmentation [Unknown]
  - Haemangioma [Unknown]
  - Rash erythematous [Recovered/Resolved]
  - Urticaria [Unknown]
  - Seborrhoeic keratosis [Unknown]
  - Skin papilloma [Unknown]

NARRATIVE: CASE EVENT DATE: 201602
